FAERS Safety Report 10276936 (Version 1)
Quarter: 2014Q3

REPORT INFORMATION
  Report Type: Spontaneous
  Country: IR (occurrence: IR)
  Receive Date: 20140703
  Receipt Date: 20140703
  Transmission Date: 20150326
  Serious: Yes (Death, Hospitalization, Other)
  Sender: FDA-Public Use
  Company Number: IR-ROXANE LABORATORIES, INC.-2014-BI-29524GD

PATIENT
  Age: 7 Year
  Sex: Male

DRUGS (8)
  1. AZATHIOPRINE. [Suspect]
     Active Substance: AZATHIOPRINE
     Indication: EVANS SYNDROME
     Route: 065
  2. PREDNISONE. [Suspect]
     Active Substance: PREDNISONE
     Indication: EVANS SYNDROME
     Route: 065
  3. METHYLPREDNISOLONE [Suspect]
     Active Substance: METHYLPREDNISOLONE
     Indication: EVANS SYNDROME
     Dosage: PULSE THERAPY
     Route: 065
  4. CYCLOSPORINE. [Suspect]
     Active Substance: CYCLOSPORINE
     Indication: EVANS SYNDROME
     Dosage: 7 MG/KG/D IN DIVIDED DOSES (Q8 H)
     Route: 065
     Dates: start: 201205
  5. IMMUNOGLOBULINS [Suspect]
     Active Substance: HUMAN IMMUNOGLOBULIN G
     Indication: EVANS SYNDROME
     Route: 042
  6. CYCLOSPORINE. [Suspect]
     Active Substance: CYCLOSPORINE
     Route: 065
  7. RITUXIMAB [Suspect]
     Active Substance: RITUXIMAB
     Indication: EVANS SYNDROME
     Dosage: 375 MG/ME2/WEEK
     Route: 065
  8. MYCOPHENOLATE MOFETIL. [Suspect]
     Active Substance: MYCOPHENOLATE MOFETIL
     Indication: EVANS SYNDROME
     Route: 065

REACTIONS (16)
  - Pallor [Unknown]
  - Jaundice [Unknown]
  - Spinal compression fracture [Unknown]
  - Aspergillus infection [Fatal]
  - Posterior reversible encephalopathy syndrome [Unknown]
  - Intervertebral discitis [Unknown]
  - Pyrexia [Unknown]
  - Marrow hyperplasia [Unknown]
  - Cushingoid [Unknown]
  - Abasia [Unknown]
  - Pancytopenia [Unknown]
  - Osteomyelitis fungal [Fatal]
  - Back pain [Unknown]
  - Paraplegia [Unknown]
  - Paraesthesia [Unknown]
  - Splenomegaly [Unknown]

NARRATIVE: CASE EVENT DATE: 201205
